FAERS Safety Report 5481617-2 (Version None)
Quarter: 2007Q4

REPORT INFORMATION
  Report Type: 
  Country: None (occurrence: None)
  Receive Date: 20071010
  Receipt Date: 20070911
  Transmission Date: 20080405
  Serious: Yes (Hospitalization)
  Sender: FDA-Public Use
  Company Number: TR-ELI_LILLY_AND_COMPANY-TR200710001829

PATIENT

DRUGS (2)
  1. HUMULIN N [Suspect]
     Indication: DIABETES MELLITUS
     Dosage: 8 U, THREE TIMES
     Route: 065
     Dates: start: 20070101
  2. HUMULIN N [Suspect]
     Dosage: 12 U, ONCE IN THE NIGHT
     Route: 065

REACTIONS (2)
  - BLOOD GLUCOSE INCREASED [None]
  - GANGRENE [None]
